FAERS Safety Report 18575104 (Version 5)
Quarter: 2021Q2

REPORT INFORMATION
  Report Type: Spontaneous
  Country: RU (occurrence: RU)
  Receive Date: 20201203
  Receipt Date: 20210511
  Transmission Date: 20210717
  Serious: Yes (Hospitalization, Disabling)
  Sender: FDA-Public Use
  Company Number: RU-ABBVIE-20K-251-3671831-00

PATIENT
  Age: 66 Year
  Sex: Female

DRUGS (5)
  1. LEVOFLOXACINUM [Concomitant]
     Active Substance: LEVOFLOXACIN
     Indication: COVID-19
  2. RINVOQ [Suspect]
     Active Substance: UPADACITINIB
     Indication: RHEUMATOID ARTHRITIS
     Route: 048
     Dates: start: 20201102, end: 20201128
  3. LEVOFLOXACINUM [Concomitant]
     Active Substance: LEVOFLOXACIN
     Indication: PNEUMONIA
     Dosage: 5 PERCENT?100 ML, SOLUTION.??2 TIMES PER DAY, DURING 4 DAYS.
     Route: 041
     Dates: start: 202012, end: 202012
  4. METHYLPREDNISOLONE. [Concomitant]
     Active Substance: METHYLPREDNISOLONE
     Indication: RHEUMATOID ARTHRITIS
     Route: 048
     Dates: start: 2007, end: 202011
  5. RINVOQ [Suspect]
     Active Substance: UPADACITINIB
     Route: 048
     Dates: start: 20210101

REACTIONS (6)
  - Neuritis [Recovered/Resolved]
  - Ear pain [Recovered/Resolved]
  - COVID-19 pneumonia [Recovered/Resolved]
  - Alopecia [Unknown]
  - Pancreatitis chronic [Recovered/Resolved]
  - Facial pain [Recovered/Resolved]

NARRATIVE: CASE EVENT DATE: 20201122
